FAERS Safety Report 6227944-2 (Version None)
Quarter: 2009Q2

REPORT INFORMATION
  Report Type: 
  Country: None (occurrence: None)
  Receive Date: 20090611
  Receipt Date: 20090526
  Transmission Date: 20091009
  Serious: Yes (Death)
  Sender: FDA-Public Use
  Company Number: BR-GENENTECH-284067

PATIENT
  Age: 83 Year
  Sex: Male

DRUGS (2)
  1. AVASTIN [Suspect]
     Indication: METASTASES TO LUNG
     Dosage: UNK
     Route: 042
     Dates: start: 20090512
  2. XELODA [Suspect]
     Indication: METASTASES TO LUNG
     Dosage: UNK
     Route: 048
     Dates: start: 20090512

REACTIONS (2)
  - MYOCARDIAL INFARCTION [None]
  - SUDDEN DEATH [None]
